FAERS Safety Report 4431322-6 (Version None)
Quarter: 2004Q3

REPORT INFORMATION
  Report Type: 
  Country: None (occurrence: None)
  Receive Date: 20040824
  Receipt Date: 20040527
  Transmission Date: 20050211
  Serious: No
  Sender: FDA-Public Use
  Company Number: US-BRISTOL-MYERS SQUIBB COMPANY-12598405

PATIENT
  Age: 54 Year
  Sex: Male
  Weight: 66 kg

DRUGS (4)
  1. SUSTIVA [Suspect]
     Indication: HIV INFECTION
     Route: 048
     Dates: start: 20040524
  2. VIREAD [Suspect]
  3. EPIVIR [Suspect]
  4. XANAX [Concomitant]

REACTIONS (4)
  - ASTHENIA [None]
  - NIGHTMARE [None]
  - PRURITUS [None]
  - RESTLESSNESS [None]
